FAERS Safety Report 8053763-0 (Version None)
Quarter: 2012Q1

REPORT INFORMATION
  Report Type: 
  Country: None (occurrence: None)
  Receive Date: 20120110
  Receipt Date: 20111227
  Transmission Date: 20120608
  Serious: Yes (Hospitalization)
  Sender: FDA-Public Use
  Company Number: DE-1188329

PATIENT
  Age: 59 Year
  Sex: Male
  Weight: 92 kg

DRUGS (1)
  1. TRAVATAN [Suspect]
     Indication: INTRAOCULAR PRESSURE INCREASED
     Dosage: (IN THE EVENING ONE DROP PER EYE OPHTHALMIC)
     Route: 047
     Dates: start: 20080701, end: 20111017

REACTIONS (7)
  - OCULAR HYPERAEMIA [None]
  - CONSTIPATION [None]
  - PROSTATIC SPECIFIC ANTIGEN INCREASED [None]
  - EYELID MARGIN CRUSTING [None]
  - DRUG INEFFECTIVE [None]
  - GROWTH OF EYELASHES [None]
  - DARK CIRCLES UNDER EYES [None]
